FAERS Safety Report 22814129 (Version 3)
Quarter: 2023Q4

REPORT INFORMATION
  Report Type: Spontaneous
  Country: US (occurrence: US)
  Receive Date: 20230811
  Receipt Date: 20231123
  Transmission Date: 20240110
  Serious: No
  Sender: FDA-Public Use
  Company Number: US-AMGEN-USASP2023139478

PATIENT
  Age: 74 Year
  Sex: Female

DRUGS (1)
  1. TAVNEOS [Suspect]
     Active Substance: AVACOPAN
     Indication: Microscopic polyangiitis
     Dosage: 30 MILLIGRAM, BID (TAKING 3 PILLS IN THE MORNING AND 3 PILLS AT NIGHT)
     Route: 065
     Dates: start: 20230717

REACTIONS (4)
  - Abdominal pain [Unknown]
  - Diarrhoea [Recovering/Resolving]
  - Abnormal faeces [Unknown]
  - Alopecia [Unknown]

NARRATIVE: CASE EVENT DATE: 20230101
